FAERS Safety Report 10049798 (Version 1)
Quarter: 2014Q1

REPORT INFORMATION
  Report Type: Spontaneous
  Country: US (occurrence: None)
  Receive Date: 20140328
  Receipt Date: 20140328
  Transmission Date: 20141002
  Serious: No
  Sender: FDA-Public Use
  Company Number: 1713747-2014-99931

PATIENT
  Sex: Male

DRUGS (8)
  1. FRESENIUS DELFLEX SOLUTION [Suspect]
     Indication: RENAL FAILURE CHRONIC
  2. FRESENIUS DELFLEX SOLUTION [Suspect]
     Indication: PERITONEAL DIALYSIS
  3. LIBERTY CYCLER [Concomitant]
  4. LIBERY CYCLER CASSETT [Concomitant]
  5. AMLODIPINE [Concomitant]
  6. LASIX [Concomitant]
  7. RENAGEL [Concomitant]
  8. RENA-VITE [Concomitant]

REACTIONS (7)
  - Peritonitis [None]
  - Disease recurrence [None]
  - Injury [None]
  - Inadequate aseptic technique in use of product [None]
  - Pseudomonas test positive [None]
  - Haemodialysis [None]
  - Catheter site related reaction [None]
